FAERS Safety Report 10176569 (Version 1)
Quarter: 2014Q2

REPORT INFORMATION
  Report Type: Spontaneous
  Country: US (occurrence: US)
  Receive Date: 20140516
  Receipt Date: 20140516
  Transmission Date: 20141212
  Serious: No
  Sender: FDA-Public Use
  Company Number: US-BAYER-2014-069421

PATIENT
  Age: 91 Year
  Sex: Female
  Weight: 56.69 kg

DRUGS (3)
  1. ALEVE CAPLET [Suspect]
     Indication: ARTHRITIS
     Dosage: 2 DF, QD
     Route: 048
  2. GARLIC [Concomitant]
  3. FOLIC ACID [Concomitant]

REACTIONS (3)
  - Dizziness [Not Recovered/Not Resolved]
  - Intentional product misuse [None]
  - Incorrect drug administration duration [None]
